FAERS Safety Report 14940834 (Version 1)
Quarter: 2018Q2

REPORT INFORMATION
  Report Type: Spontaneous
  Country: US (occurrence: US)
  Receive Date: 20180525
  Receipt Date: 20180525
  Transmission Date: 20180711
  Serious: Yes (Hospitalization)
  Sender: FDA-Public Use
  Company Number: US-ELI_LILLY_AND_COMPANY-US201805008511

PATIENT
  Age: 60 Year
  Sex: Female
  Weight: 90.8 kg

DRUGS (7)
  1. THIOTHIXENE                        /00099101/ [Suspect]
     Active Substance: THIOTHIXENE
     Indication: PSYCHOTIC DISORDER
  2. TIMOPTIC [Concomitant]
     Active Substance: TIMOLOL MALEATE
     Indication: PRODUCT USED FOR UNKNOWN INDICATION
     Dosage: UNK
     Route: 047
     Dates: end: 200202
  3. THIOTHIXENE                        /00099101/ [Suspect]
     Active Substance: THIOTHIXENE
     Indication: BIPOLAR DISORDER
     Dosage: 4 MG, DAILY
     Route: 048
     Dates: start: 200108, end: 20020213
  4. DEPAKOTE [Suspect]
     Active Substance: DIVALPROEX SODIUM
     Indication: ILL-DEFINED DISORDER
     Dosage: UNK
     Route: 048
     Dates: end: 20020213
  5. THIOTHIXENE                        /00099101/ [Suspect]
     Active Substance: THIOTHIXENE
     Indication: SCHIZOAFFECTIVE DISORDER
  6. ZYPREXA [Suspect]
     Active Substance: OLANZAPINE
     Indication: ILL-DEFINED DISORDER
     Dosage: 2.5 MG, DAILY
     Route: 048
     Dates: start: 20020216, end: 20020305
  7. NICOTINE. [Suspect]
     Active Substance: NICOTINE
     Indication: ILL-DEFINED DISORDER
     Dosage: UNK UNK, UNKNOWN
     Route: 065
     Dates: end: 200202

REACTIONS (5)
  - Chronic obstructive pulmonary disease [Unknown]
  - Abnormal dreams [Unknown]
  - Extrapyramidal disorder [Unknown]
  - Drug withdrawal syndrome [Unknown]
  - Bronchitis [Unknown]

NARRATIVE: CASE EVENT DATE: 2001
